FAERS Safety Report 18916712 (Version 1)
Quarter: 2021Q1

REPORT INFORMATION
  Report Type: Report from Study
  Country: US (occurrence: US)
  Receive Date: 20210219
  Receipt Date: 20210219
  Transmission Date: 20210420
  Serious: Yes (Other)
  Sender: FDA-Public Use
  Company Number: US-MYLANLABS-2020M1106152

PATIENT
  Age: 53 Year
  Sex: Female
  Weight: 93 kg

DRUGS (17)
  1. GLATIRAMER ACETATE INJECTION [Suspect]
     Active Substance: GLATIRAMER ACETATE
     Indication: MULTIPLE SCLEROSIS
     Dosage: 40 MILLIGRAM, 3XW
     Route: 058
     Dates: start: 20201211
  2. GLATIRAMER ACETATE INJECTION [Suspect]
     Active Substance: GLATIRAMER ACETATE
     Dosage: 40 MILLIGRAM, 3XW
     Route: 058
     Dates: start: 20201214
  3. XANAX [Concomitant]
     Active Substance: ALPRAZOLAM
     Dosage: UNK
  4. METOPROLOL. [Concomitant]
     Active Substance: METOPROLOL
     Dosage: UNK
  5. HYDROCHLOROTHIAZIDE W/OLMESARTAN [Concomitant]
     Active Substance: HYDROCHLOROTHIAZIDE\OLMESARTAN MEDOXOMIL
     Dosage: UNK
  6. PANTOPRAZOLE [Concomitant]
     Active Substance: PANTOPRAZOLE
     Dosage: UNK
  7. GLATIRAMER ACETATE INJECTION [Suspect]
     Active Substance: GLATIRAMER ACETATE
     Dosage: 40 MILLIGRAM, 3XW
     Route: 058
     Dates: start: 20201218
  8. GLATIRAMER ACETATE INJECTION [Suspect]
     Active Substance: GLATIRAMER ACETATE
     Dosage: 40 MILLIGRAM, 3XW
     Route: 058
     Dates: start: 20201216
  9. ZOLOFT [Concomitant]
     Active Substance: SERTRALINE HYDROCHLORIDE
     Dosage: UNK
  10. HYDROXYZINE [Concomitant]
     Active Substance: HYDROXYZINE HYDROCHLORIDE
     Dosage: UNK
  11. ERYTHROMYCIN. [Concomitant]
     Active Substance: ERYTHROMYCIN
     Dosage: UNK
  12. PREDNISONE. [Concomitant]
     Active Substance: PREDNISONE
     Dosage: UNK
  13. PROPRANOLOL [Concomitant]
     Active Substance: PROPRANOLOL HYDROCHLORIDE
     Dosage: UNK
  14. CEFTRIAXONE. [Concomitant]
     Active Substance: CEFTRIAXONE
     Dosage: UNK
  15. LYRICA [Concomitant]
     Active Substance: PREGABALIN
     Dosage: UNK
  16. MAXALT [Concomitant]
     Active Substance: RIZATRIPTAN BENZOATE
     Dosage: UNK
  17. ACYCLOVIR                          /00587301/ [Concomitant]
     Active Substance: ACYCLOVIR
     Dosage: UNK UNK, QD

REACTIONS (12)
  - Dyskinesia [Unknown]
  - Pyrexia [Unknown]
  - Seizure [Recovered/Resolved]
  - Blood pressure increased [Recovered/Resolved]
  - Muscle spasms [Recovered/Resolved]
  - Aphonia [Recovered/Resolved]
  - Injection site pain [Unknown]
  - Tremor [Unknown]
  - Nausea [Unknown]
  - Panic attack [Recovering/Resolving]
  - Injection site bruising [Unknown]
  - Trismus [Recovered/Resolved]

NARRATIVE: CASE EVENT DATE: 20201218
